FAERS Safety Report 6634171-3 (Version None)
Quarter: 2010Q1

REPORT INFORMATION
  Report Type: 
  Country: None (occurrence: None)
  Receive Date: 20100315
  Receipt Date: 20100304
  Transmission Date: 20100710
  Serious: Yes (Hospitalization)
  Sender: FDA-Public Use
  Company Number: CH-ASTRAZENECA-2010SE10107

PATIENT
  Age: 49 Year
  Sex: Male

DRUGS (6)
  1. SEROQUEL [Suspect]
     Route: 048
     Dates: start: 20091222, end: 20091228
  2. DEKAPINE [Suspect]
     Route: 048
     Dates: start: 20091222
  3. SERTRALINE [Suspect]
     Route: 048
     Dates: start: 20091222
  4. VALIUM [Suspect]
     Route: 048
     Dates: start: 20091222
  5. BENERVA [Suspect]
     Route: 048
     Dates: start: 20091222
  6. BECOZYM [Suspect]
     Dates: start: 20091222

REACTIONS (1)
  - DERMATITIS ALLERGIC [None]
